FAERS Safety Report 21075771 (Version 2)
Quarter: 2022Q3

REPORT INFORMATION
  Report Type: Spontaneous
  Country: US (occurrence: US)
  Receive Date: 20220713
  Receipt Date: 20220803
  Transmission Date: 20221026
  Serious: No
  Sender: FDA-Public Use
  Company Number: US-BRISTOL-MYERS SQUIBB COMPANY-2022-072690

PATIENT
  Age: 64 Year
  Sex: Female

DRUGS (2)
  1. REVLIMID [Suspect]
     Active Substance: LENALIDOMIDE
     Indication: Plasma cell myeloma
     Dosage: FREQUENCY: FOR 21 DAYS ON THEN 7 DAYS OFF
     Route: 048
     Dates: start: 20200109
  2. ELIQUIS [Suspect]
     Active Substance: APIXABAN
     Indication: Pulmonary embolism
     Route: 065

REACTIONS (9)
  - Dyspnoea [Unknown]
  - Chest pain [Unknown]
  - Abdominal pain upper [Unknown]
  - Back pain [Unknown]
  - Diarrhoea [Unknown]
  - Hiccups [Unknown]
  - Hypoaesthesia [Unknown]
  - Paraesthesia [Unknown]
  - Chest discomfort [Unknown]
